APPROVED DRUG PRODUCT: AMOXICILLIN
Active Ingredient: AMOXICILLIN
Strength: 250MG
Dosage Form/Route: CAPSULE;ORAL
Application: A063030 | Product #001
Applicant: TEVA PHARMACEUTICALS USA INC
Approved: Feb 28, 1989 | RLD: No | RS: No | Type: DISCN